FAERS Safety Report 8530530-2 (Version None)
Quarter: 2012Q2

REPORT INFORMATION
  Report Type: 
  Country: None (occurrence: None)
  Receive Date: 20120411
  Receipt Date: 20120305
  Transmission Date: 20120825
  Serious: No
  Sender: FDA-Public Use
  Company Number: PHHY2011US18994

PATIENT
  Age: 62 Year
  Sex: Female
  Weight: 63 kg

DRUGS (1)
  1. ILARIS [Suspect]
     Indication: FAMILIAL COLD AUTOINFLAMMATORY SYNDROME
     Dosage: 150 MG, EVERY 8 WEEKS, SUBCUTANEOUS
     Route: 058
     Dates: start: 20101007

REACTIONS (3)
  - INCREASED APPETITE [None]
  - GASTROINTESTINAL DISORDER [None]
  - WEIGHT INCREASED [None]
